FAERS Safety Report 16420372 (Version 1)
Quarter: 2019Q3

REPORT INFORMATION
  Report Type: Spontaneous
  Country: US (occurrence: US)
  Receive Date: 20190611
  Receipt Date: 20190611
  Transmission Date: 20191004
  Serious: No
  Sender: FDA-Public Use
  Company Number: None

PATIENT
  Age: 20 Year
  Sex: Female
  Weight: 73.9 kg

DRUGS (2)
  1. BAXTER SIGMA SPECTRUM [Suspect]
     Active Substance: DEVICE
  2. SODIUM CHLORIDE 0.9% WITH 20MEQ K+ PER L [Suspect]
     Active Substance: POTASSIUM CATION\SODIUM CHLORIDE

REACTIONS (4)
  - Infusion site pain [None]
  - Burning sensation [None]
  - Device battery issue [None]
  - Device infusion issue [None]

NARRATIVE: CASE EVENT DATE: 20190523
